FAERS Safety Report 8388683-5 (Version None)
Quarter: 2012Q2

REPORT INFORMATION
  Report Type: 
  Country: None (occurrence: None)
  Receive Date: 20120525
  Receipt Date: 20120327
  Transmission Date: 20120825
  Serious: Yes (Other)
  Sender: FDA-Public Use
  Company Number: US-ASTRAZENECA-2012SE20708

PATIENT
  Age: 60 Year
  Sex: Male

DRUGS (6)
  1. SINGULAIR [Concomitant]
     Route: 048
  2. GENERIC CLARITIN - D [Concomitant]
     Dosage: 24 HR TABLET
     Route: 048
  3. GENERIC ZYRTEC - D [Concomitant]
     Dosage: 24 HR TABLET
     Route: 048
  4. PULMICORT FLEXHALER [Suspect]
     Route: 055
  5. RHINOCORT [Suspect]
     Route: 045
  6. PROAIR HFA [Concomitant]
     Route: 065

REACTIONS (1)
  - CATARACT [None]
